FAERS Safety Report 24441398 (Version 2)
Quarter: 2024Q4

REPORT INFORMATION
  Report Type: Report from Study
  Country: US (occurrence: US)
  Receive Date: 20241016
  Receipt Date: 20241017
  Transmission Date: 20250115
  Serious: No
  Sender: ROCHE
  Company Number: US-ROCHE-3473461

PATIENT
  Age: 6 Month
  Sex: Male

DRUGS (1)
  1. HEMLIBRA [Suspect]
     Active Substance: EMICIZUMAB-KXWH
     Indication: Factor VIII deficiency
     Route: 065

REACTIONS (12)
  - Fall [Unknown]
  - Lip injury [Unknown]
  - Multiple fractures [Unknown]
  - Haemorrhage [Unknown]
  - Urticaria [Unknown]
  - Head injury [Unknown]
  - Burning sensation [Unknown]
  - Pain [Unknown]
  - Injection site pain [Unknown]
  - Skin lesion [Unknown]
  - Chapped lips [Unknown]
  - Upper limb fracture [Unknown]
